FAERS Safety Report 21371873 (Version 1)
Quarter: 2022Q3

REPORT INFORMATION
  Report Type: Spontaneous
  Country: US (occurrence: US)
  Receive Date: 20220923
  Receipt Date: 20220923
  Transmission Date: 20221026
  Serious: Yes (Other)
  Sender: FDA-Public Use
  Company Number: US-TEVA-2022-US-2074798

PATIENT
  Age: 22 Year
  Sex: Female

DRUGS (1)
  1. NEOMYCIN [Suspect]
     Active Substance: NEOMYCIN
     Indication: Product used for unknown indication
     Dosage: STRENGTH: 500 MG

REACTIONS (4)
  - Deafness [Recovered/Resolved]
  - Vertigo [Recovered/Resolved]
  - Ear discomfort [Recovered/Resolved]
  - Recalled product administered [Unknown]
